FAERS Safety Report 5708082-1 (Version None)
Quarter: 2008Q2

REPORT INFORMATION
  Report Type: 
  Country: None (occurrence: None)
  Receive Date: 20080417
  Receipt Date: 20080407
  Transmission Date: 20081010
  Serious: No
  Sender: FDA-Public Use
  Company Number: US-ABBOTT-01P-163-0184670-00

PATIENT
  Sex: Female
  Weight: 48.578 kg

DRUGS (26)
  1. SYNTHROID [Suspect]
     Indication: HYPOTHYROIDISM
     Route: 048
     Dates: start: 20010315
  2. SYNTHROID [Suspect]
     Route: 048
  3. SYNTHROID [Suspect]
  4. OMEPRAZOLE [Suspect]
     Indication: DYSPEPSIA
     Route: 048
  5. OMEPRAZOLE [Suspect]
     Indication: GASTROOESOPHAGEAL REFLUX DISEASE
  6. LANSOPRAZOLE [Suspect]
     Indication: DYSPEPSIA
     Route: 048
  7. LANSOPRAZOLE [Suspect]
     Indication: GASTROOESOPHAGEAL REFLUX DISEASE
  8. NIZATIDINE [Suspect]
     Indication: DYSPEPSIA
     Route: 048
  9. NIZATIDINE [Suspect]
     Indication: GASTROOESOPHAGEAL REFLUX DISEASE
  10. SERTRALINE [Interacting]
     Indication: ANXIETY
     Route: 048
     Dates: start: 19980210
  11. SERTRALINE [Interacting]
     Indication: DEPRESSION
  12. SERTRALINE [Interacting]
     Indication: PANIC ATTACK
  13. SERTRALINE [Interacting]
     Indication: IRRITABLE BOWEL SYNDROME
     Dates: start: 19980430
  14. SERTRALINE [Interacting]
     Dates: start: 19980602, end: 19990804
  15. SERTRALINE [Interacting]
     Dates: start: 19990804, end: 20020315
  16. SERTRALINE [Interacting]
     Dates: start: 20020801
  17. SERTRALINE [Interacting]
     Dates: start: 20030118, end: 20030125
  18. SERTRALINE [Interacting]
     Dates: start: 20030125
  19. SERTRALINE [Interacting]
  20. SERTRALINE [Interacting]
  21. CYPROHEPTADINE HCL [Interacting]
     Indication: APPETITE DISORDER
     Route: 048
     Dates: start: 19970101
  22. CYPROHEPTADINE HCL [Interacting]
     Indication: STOMACH DISCOMFORT
  23. CYPROHEPTADINE HCL [Interacting]
     Indication: INCREASED APPETITE
  24. CYPROHEPTADINE HCL [Interacting]
     Indication: ANOREXIA
  25. CYPROHEPTADINE HCL [Interacting]
     Indication: SLEEP DISORDER
  26. CYPROHEPTADINE HCL [Interacting]
     Indication: HYPERSENSITIVITY

REACTIONS (39)
  - ABDOMINAL PAIN [None]
  - ACNE [None]
  - AMENORRHOEA [None]
  - ANXIETY [None]
  - CONSTIPATION [None]
  - DECREASED APPETITE [None]
  - DEPRESSION [None]
  - DIARRHOEA [None]
  - DISTURBANCE IN ATTENTION [None]
  - DIZZINESS [None]
  - DRUG ADMINISTRATION ERROR [None]
  - DRUG INEFFECTIVE [None]
  - DRUG INTERACTION [None]
  - DRUG LEVEL INCREASED [None]
  - DRY MOUTH [None]
  - DYSPEPSIA [None]
  - GASTRIC DISORDER [None]
  - GASTROINTESTINAL INFECTION [None]
  - GASTROOESOPHAGEAL REFLUX DISEASE [None]
  - GLOSSODYNIA [None]
  - HAEMORRHOIDS [None]
  - HYPERMETABOLISM [None]
  - INSOMNIA [None]
  - IRRITABLE BOWEL SYNDROME [None]
  - MALAISE [None]
  - MENSTRUATION IRREGULAR [None]
  - METABOLIC DISORDER [None]
  - NAUSEA [None]
  - NERVOUSNESS [None]
  - PRURITUS [None]
  - STOMACH DISCOMFORT [None]
  - TEMPERATURE INTOLERANCE [None]
  - TONGUE BLISTERING [None]
  - TONGUE GEOGRAPHIC [None]
  - URTICARIA [None]
  - UTERINE LEIOMYOMA [None]
  - UTERINE POLYP [None]
  - WEIGHT DECREASED [None]
  - WEIGHT INCREASED [None]
